FAERS Safety Report 15115129 (Version 6)
Quarter: 2019Q2

REPORT INFORMATION
  Report Type: Report from Study
  Country: GB (occurrence: GB)
  Receive Date: 20180706
  Receipt Date: 20190530
  Transmission Date: 20190711
  Serious: Yes (Hospitalization, Other)
  Sender: FDA-Public Use
  Company Number: GB-ASPEN-GLO2017GB003213

PATIENT
  Age: 73 Year
  Sex: Female
  Weight: 52.4 kg

DRUGS (33)
  1. DEXAMETHASONE. [Suspect]
     Active Substance: DEXAMETHASONE
     Dosage: 20 MG. CYCLICALLY. CYCLE 1-9 DATS. 1,2,4,5,8,9,11,12/21 DAY CYCLE;CYCLE 9+:DAYS 1,2,8,9,15,16,22,23/
     Route: 048
     Dates: start: 20181228, end: 20190330
  2. VENETOCLAX. [Suspect]
     Active Substance: VENETOCLAX
     Dosage: 600 MG, QD
     Route: 048
     Dates: start: 20170530, end: 20190411
  3. PARACETAMOL [Concomitant]
     Active Substance: ACETAMINOPHEN
     Indication: SEPSIS
     Dosage: 1 G
     Route: 048
     Dates: start: 20170410
  4. SANDO K [Concomitant]
     Indication: HYPOKALAEMIA
  5. ALBUTEROL. [Concomitant]
     Active Substance: ALBUTEROL
     Indication: SEPSIS
     Dosage: 200 MG
     Route: 048
     Dates: start: 1997
  6. ALBUTEROL. [Concomitant]
     Active Substance: ALBUTEROL
     Indication: ASTHMA
     Dosage: 5 MG
     Route: 045
     Dates: start: 20170410
  7. BACTRIM [Suspect]
     Active Substance: SULFAMETHOXAZOLE\TRIMETHOPRIM
     Indication: ANTIBIOTIC PROPHYLAXIS
  8. ADCAL D3 [Concomitant]
     Active Substance: CALCIUM CARBONATE\CHOLECALCIFEROL
     Indication: PRODUCT USED FOR UNKNOWN INDICATION
     Dosage: UNK UNK
     Route: 048
     Dates: start: 201701
  9. BECLOMETASONE [Concomitant]
     Active Substance: BECLOMETHASONE DIPROPIONATE
     Indication: PRODUCT USED FOR UNKNOWN INDICATION
     Dosage: 400 MCG, QD
     Route: 048
     Dates: start: 1997
  10. DULOXETINE. [Concomitant]
     Active Substance: DULOXETINE
     Indication: PAIN IN EXTREMITY
     Route: 065
  11. VISCOTEARS [Concomitant]
     Active Substance: CARBOMER
     Indication: DRY EYE
     Route: 065
  12. ALUDROX [Concomitant]
     Indication: HYPOMAGNESAEMIA
  13. BORTEZOMIB. [Suspect]
     Active Substance: BORTEZOMIB
     Indication: PLASMA CELL MYELOMA
     Dosage: 1.3 MG/M2 (1 IN 1 D);CYCLE 1-8 1,4,8,11 OF 21 DAY CYCLE. CYCLE 9 AND DAYS BEYOND 1,8,15,22 OF 35 DAY
     Route: 058
     Dates: start: 20170404, end: 20181214
  14. VENETOCLAX. [Suspect]
     Active Substance: VENETOCLAX
     Indication: PLASMA CELL MYELOMA
     Dosage: 2 MG, QD
     Route: 048
     Dates: start: 20170530
  15. OMEPRAZOLE. [Concomitant]
     Active Substance: OMEPRAZOLE
     Indication: PRODUCT USED FOR UNKNOWN INDICATION
     Dosage: 20 MG, QD
     Route: 048
     Dates: start: 201609
  16. DEXAMETHASONE. [Suspect]
     Active Substance: DEXAMETHASONE
     Indication: PLASMA CELL MYELOMA
     Dosage: 20 MG. CYCLICALLY. CYCLE 1-9 DATS. 1,2,4,5,8,9,11,12/21 DAY CYCLE;CYCLE 9+:DAYS 1,2,8,9,15,16,22,23/
     Route: 048
     Dates: start: 20170404, end: 20181215
  17. CETIRIZINE [Concomitant]
     Active Substance: CETIRIZINE HYDROCHLORIDE
     Indication: SEASONAL ALLERGY
     Dosage: UNK
     Route: 065
  18. DIFLAM [Concomitant]
     Indication: MOUTH ULCERATION
     Route: 065
  19. GAVISCON [Concomitant]
     Active Substance: ALUMINUM HYDROXIDE\MAGNESIUM CARBONATE
     Indication: FLATULENCE
     Dosage: UNK
     Route: 065
  20. BORTEZOMIB. [Suspect]
     Active Substance: BORTEZOMIB
     Dosage: 1.3 MG/M2 (1 IN 1 D);CYCLE 1-8 1,4,8,11 OF 21 DAY CYCLE. CYCLE 9 AND DAYS BEYOND 1,8,15,22 OF 35 DAY
     Route: 058
     Dates: start: 20181228, end: 20190418
  21. VENETOCLAX. [Suspect]
     Active Substance: VENETOCLAX
     Dosage: 800 MG, QD
     Route: 048
     Dates: start: 20170404
  22. ZOMETA [Concomitant]
     Active Substance: ZOLEDRONIC ACID
     Indication: PRODUCT USED FOR UNKNOWN INDICATION
     Dosage: 4 MG EVERY 4 WEEKS
     Route: 042
     Dates: start: 201312
  23. ACICLOVIR [Concomitant]
     Active Substance: ACYCLOVIR
     Indication: PRODUCT USED FOR UNKNOWN INDICATION
     Dosage: 400 MG, QD
     Route: 048
     Dates: start: 20170403
  24. VALACYCLOVIR [Concomitant]
     Active Substance: VALACYCLOVIR HYDROCHLORIDE
     Indication: ANTIVIRAL PROPHYLAXIS
     Route: 065
  25. MAGNESIUM [Concomitant]
     Active Substance: MAGNESIUM
     Indication: MUSCLE SPASMS
     Dosage: UNK
     Route: 065
  26. ZEROBASE [Concomitant]
     Active Substance: MINERAL OIL\PARAFFIN
     Indication: DRY SKIN
     Route: 065
  27. VENETOCLAX. [Suspect]
     Active Substance: VENETOCLAX
     Dosage: 2 MG, QD
     Route: 048
     Dates: start: 20170404, end: 20170522
  28. VENTOLIN [Concomitant]
     Active Substance: ALBUTEROL SULFATE
     Indication: ASTHMA
     Dosage: 2 DF, QD (2 PUFFS)
     Route: 048
     Dates: start: 1988
  29. ALBUTEROL. [Concomitant]
     Active Substance: ALBUTEROL
     Dosage: UNK
     Route: 065
     Dates: start: 1997
  30. CORSODYL [Concomitant]
     Active Substance: CHLORHEXIDINE GLUCONATE
     Indication: MOUTH ULCERATION
     Route: 065
  31. BONJELA [Concomitant]
     Active Substance: CETALKONIUM CHLORIDE\CHOLINE SALICYLATE\MENTHOL
     Indication: MOUTH ULCERATION
     Route: 065
  32. LOPERAMIDE [Concomitant]
     Active Substance: LOPERAMIDE
     Indication: DIARRHOEA
     Route: 065
  33. QUININE SULFATE. [Concomitant]
     Active Substance: QUININE SULFATE
     Indication: MUSCLE SPASMS
     Route: 065

REACTIONS (8)
  - Lower respiratory tract infection [Recovered/Resolved]
  - Sepsis [Recovered/Resolved]
  - Pneumonia [Recovered/Resolved]
  - Lower respiratory tract infection [Recovered/Resolved]
  - Lower respiratory tract infection [Recovered/Resolved]
  - Pneumonia [Recovered/Resolved]
  - C-reactive protein increased [Not Recovered/Not Resolved]
  - Lower respiratory tract infection [Recovered/Resolved]

NARRATIVE: CASE EVENT DATE: 20170410
